FAERS Safety Report 6112278-7 (Version None)
Quarter: 2009Q1

REPORT INFORMATION
  Report Type: 
  Country: None (occurrence: None)
  Receive Date: 20090311
  Receipt Date: 20090311
  Transmission Date: 20090719
  Serious: No
  Sender: FDA-Public Use
  Company Number: None

PATIENT
  Sex: Female

DRUGS (1)
  1. AMLODIPINE [Suspect]
     Dosage: 10 MG BID, PO
     Route: 048
     Dates: start: 20070901, end: 20080101

REACTIONS (1)
  - CONVULSION [None]
